FAERS Safety Report 5100955-6 (Version None)
Quarter: 2006Q3

REPORT INFORMATION
  Report Type: 
  Country: None (occurrence: None)
  Receive Date: 20060911
  Receipt Date: 20060831
  Transmission Date: 20061208
  Serious: Yes (Other)
  Sender: FDA-Public Use
  Company Number: GB-JNJFOC-20060900010

PATIENT

DRUGS (3)
  1. REMICADE [Suspect]
     Indication: RHEUMATOID ARTHRITIS
     Route: 042
  2. PURITIN [Concomitant]
     Route: 065
  3. HYDROCORTISONE [Concomitant]
     Route: 065

REACTIONS (2)
  - INFUSION RELATED REACTION [None]
  - LEG AMPUTATION [None]
